FAERS Safety Report 10250271 (Version 2)
Quarter: 2014Q2

REPORT INFORMATION
  Report Type: Spontaneous
  Country: US (occurrence: US)
  Receive Date: 20140620
  Receipt Date: 20140623
  Transmission Date: 20141212
  Serious: Yes (Death)
  Sender: FDA-Public Use
  Company Number: US-GLAXOSMITHKLINE-A1077612A

PATIENT
  Age: 71 Year
  Sex: Female

DRUGS (1)
  1. NICORETTE OTC 4MG [Suspect]
     Indication: SMOKING CESSATION THERAPY
     Route: 002

REACTIONS (2)
  - Neoplasm malignant [Fatal]
  - Incorrect drug administration duration [Unknown]
